FAERS Safety Report 4444673-6 (Version None)
Quarter: 2004Q3

REPORT INFORMATION
  Report Type: 
  Country: None (occurrence: None)
  Receive Date: 20040907
  Receipt Date: 20040831
  Transmission Date: 20050211
  Serious: Yes (Life-Threatening)
  Sender: FDA-Public Use
  Company Number: 2004AP04376

PATIENT
  Age: 21 Year
  Sex: Female
  Weight: 42.7 kg

DRUGS (6)
  1. OMEPRAL [Suspect]
     Indication: PROPHYLAXIS AGAINST GASTROINTESTINAL ULCER
     Dosage: 10 MG DAILY PO
     Route: 048
     Dates: start: 20040625, end: 20040817
  2. BAKTAR [Suspect]
     Indication: INFECTION PROPHYLAXIS
     Dosage: 480 MG DAILY PO
     Route: 048
     Dates: start: 20040707, end: 20040817
  3. BLOPRESS [Suspect]
     Indication: AORTIC VALVE INCOMPETENCE
     Dosage: 2 MG DAILY PO
     Route: 048
     Dates: start: 20040802, end: 20040817
  4. BAYASPRIN [Concomitant]
  5. MAGNESIUM OXIDE [Concomitant]
  6. PREDONINE [Concomitant]

REACTIONS (2)
  - AGRANULOCYTOSIS [None]
  - AORTIC DISORDER [None]
